FAERS Safety Report 9994590 (Version 2)
Quarter: 2014Q1

REPORT INFORMATION
  Report Type: Spontaneous
  Country: US (occurrence: US)
  Receive Date: 20140311
  Receipt Date: 20140326
  Transmission Date: 20141002
  Serious: Yes (Other)
  Sender: FDA-Public Use
  Company Number: US-BRISTOL-MYERS SQUIBB COMPANY-20342143

PATIENT
  Age: 46 Year
  Sex: Female

DRUGS (3)
  1. ABILIFY [Suspect]
     Indication: SCHIZOPHRENIA, DISORGANISED TYPE
     Dates: start: 2004
  2. WELLBUTRIN [Suspect]
  3. PAXIL [Suspect]
     Indication: DEPRESSION
     Dosage: 1DF: 37.5
     Route: 048

REACTIONS (2)
  - Herpes zoster [Unknown]
  - Fungal infection [Unknown]
